FAERS Safety Report 8777062 (Version 3)
Quarter: 2012Q4

REPORT INFORMATION
  Report Type: 
  Country: IE (occurrence: IE)
  Receive Date: 20120911
  Receipt Date: 20121113
  Transmission Date: 20130627
  Serious: Yes (Hospitalization)
  Sender: FDA-Public Use
  Company Number: PHFR2012IE004883

PATIENT
  Age: 25 Year
  Sex: Male

DRUGS (3)
  1. CLOZARIL [Suspect]
     Indication: SCHIZOPHRENIA
     Dosage: UNK mg, UNK
     Route: 048
     Dates: start: 20111130, end: 20120820
  2. CLOZARIL [Suspect]
     Dosage: 100 mg, UNK
     Route: 048
     Dates: start: 20120906, end: 20120906
  3. CLOZARIL [Suspect]
     Dosage: 300 mg, UNK
     Route: 048
     Dates: start: 20120831

REACTIONS (2)
  - Schizophrenia [Not Recovered/Not Resolved]
  - Incorrect dose administered [Unknown]
